FAERS Safety Report 8398254-2 (Version None)
Quarter: 2012Q2

REPORT INFORMATION
  Report Type: 
  Country: None (occurrence: None)
  Receive Date: 20120531
  Receipt Date: 20120525
  Transmission Date: 20120825
  Serious: Yes (Other)
  Sender: FDA-Public Use
  Company Number: US-AMGEN-USASP2011004509

PATIENT
  Age: 47 Year
  Sex: Female

DRUGS (14)
  1. ENBREL [Suspect]
     Indication: RHEUMATOID ARTHRITIS
     Dosage: 50 MG, QWK
     Route: 058
     Dates: start: 20110108, end: 20110901
  2. BENADRYL ALLERGY + COLD [Concomitant]
     Dosage: UNK UNK, QD
     Route: 048
  3. CIMZIA [Concomitant]
     Indication: RHEUMATOID ARTHRITIS
     Dosage: 200 MG, Q2WK
     Route: 058
     Dates: start: 20110926
  4. PLAQUENIL [Concomitant]
     Dosage: 200 MG, QD
     Route: 048
     Dates: start: 20101011
  5. LODINE [Concomitant]
     Indication: RHEUMATOID ARTHRITIS
     Dosage: 400 MG, QD
     Route: 048
  6. METHOTREXATE [Concomitant]
     Indication: RHEUMATOID ARTHRITIS
     Dosage: 25 MG, QWK
  7. FOLIC ACID [Concomitant]
     Dosage: 1 MG, UNK
  8. LISINOPRIL [Concomitant]
     Dosage: 20 MG, QD
     Route: 048
     Dates: start: 20101006
  9. PLAQUENIL [Concomitant]
     Dosage: 200 MG, BID
     Route: 048
  10. IBUPROFEN [Concomitant]
     Dosage: UNK UNK, BID
  11. FISH OIL [Concomitant]
     Dosage: UNK
  12. TYLENOL PM [Concomitant]
     Dosage: UNK UNK, QHS
  13. PLAQUENIL [Concomitant]
     Indication: RHEUMATOID ARTHRITIS
     Dosage: 200 MG, QOD
     Route: 048
  14. MULTI-VITAMINS [Concomitant]
     Dosage: UNK

REACTIONS (25)
  - MOBILITY DECREASED [None]
  - BLADDER SPASM [None]
  - SYNOVIAL DISORDER [None]
  - FATIGUE [None]
  - ADJUSTMENT DISORDER [None]
  - PRODUCTIVE COUGH [None]
  - MYALGIA [None]
  - LYMPHADENOPATHY [None]
  - DEPRESSION [None]
  - STOMATITIS [None]
  - JOINT CREPITATION [None]
  - VISUAL IMPAIRMENT [None]
  - INJECTION SITE SWELLING [None]
  - INJECTION SITE ERYTHEMA [None]
  - HYPERTENSION [None]
  - NAUSEA [None]
  - HEADACHE [None]
  - ALOPECIA [None]
  - OBESITY [None]
  - NEPHROLITHIASIS [None]
  - RHEUMATOID ARTHRITIS [None]
  - COSTOVERTEBRAL ANGLE TENDERNESS [None]
  - ABDOMINAL PAIN [None]
  - HEPATIC STEATOSIS [None]
  - NECK PAIN [None]
